FAERS Safety Report 12658054 (Version 1)
Quarter: 2016Q3

REPORT INFORMATION
  Report Type: Spontaneous
  Country: JP (occurrence: JP)
  Receive Date: 20160817
  Receipt Date: 20160817
  Transmission Date: 20161109
  Serious: Yes (Hospitalization)
  Sender: FDA-Public Use
  Company Number: JP-009507513-1608JPN007790

PATIENT
  Sex: Female

DRUGS (1)
  1. FOSAMAC TABLETS 35MG [Suspect]
     Active Substance: ALENDRONATE SODIUM
     Dosage: DAILY DOSAGE UNKNOWN
     Route: 048

REACTIONS (3)
  - Musculoskeletal disorder [Unknown]
  - Arthralgia [Unknown]
  - Pain in extremity [Unknown]
